FAERS Safety Report 18189690 (Version 3)
Quarter: 2020Q3

REPORT INFORMATION
  Report Type: Spontaneous
  Country: US (occurrence: US)
  Receive Date: 20200824
  Receipt Date: 20200922
  Transmission Date: 20201103
  Serious: Yes (Hospitalization)
  Sender: FDA-Public Use
  Company Number: US-FRESENIUS KABI-FK202008514

PATIENT
  Age: 4 Year
  Sex: Male
  Weight: 15.6 kg

DRUGS (5)
  1. CISPLATIN (MANUFACTURER UNKNOWN) [Suspect]
     Active Substance: CISPLATIN
     Indication: NEUROBLASTOMA
     Dosage: TOTAL DOSE ADMINISTERED THIS COURSE 40.8 MG
     Route: 042
     Dates: start: 20200724, end: 20200727
  2. TRIAMCINOLONE ACETONIDE/NYSTATIN [Concomitant]
     Indication: PRODUCT USED FOR UNKNOWN INDICATION
     Route: 065
     Dates: start: 20200730
  3. CRIZOTINIB [Suspect]
     Active Substance: CRIZOTINIB
     Indication: NEUROBLASTOMA
     Dosage: TOTAL DOSE ADMINISTERED THIS COURSE 145 MG?31JUL2020 PM DOSE AND 01AUG2020 AM DOSE OF CRIZOTINIB WAS
     Route: 048
     Dates: end: 20200729
  4. CRIZOTINIB [Suspect]
     Active Substance: CRIZOTINIB
     Dosage: CRIZOTINIB WAS RESTARTED ON 01AUG2020 PM DOSE
     Route: 065
     Dates: start: 20200801
  5. ETOPOSIDE. [Suspect]
     Active Substance: ETOPOSIDE
     Indication: NEUROBLASTOMA
     Dosage: TOTAL DOSE ADMINISTERED THIS COURSE 136 MG
     Route: 042
     Dates: start: 20200724, end: 20200727

REACTIONS (6)
  - Dehydration [Recovered/Resolved]
  - Hypokalaemia [Recovered/Resolved]
  - Hyponatraemia [Recovered/Resolved]
  - Hypochloraemia [Recovered/Resolved]
  - Hypotension [Recovered/Resolved]
  - Blood urea increased [Recovered/Resolved]

NARRATIVE: CASE EVENT DATE: 20200731
